FAERS Safety Report 7819093-4 (Version None)
Quarter: 2011Q4

REPORT INFORMATION
  Report Type: 
  Country: None (occurrence: None)
  Receive Date: 20111018
  Receipt Date: 20111004
  Transmission Date: 20120403
  Serious: Yes (Hospitalization, Other)
  Sender: FDA-Public Use
  Company Number: US-BAYER-2011-081873

PATIENT
  Age: 19 Year
  Sex: Female
  Weight: 54.422 kg

DRUGS (9)
  1. MOTRIN [Concomitant]
     Dosage: UNK UNK, PRN
     Route: 048
  2. BENTYL [Concomitant]
  3. ORTHO TRI-CYCLEN [Concomitant]
  4. FLAGYL [Concomitant]
     Indication: VULVOVAGINITIS
  5. FLAGYL [Concomitant]
     Indication: VAGINAL INFECTION
     Dosage: 500 MG, BID
     Route: 048
     Dates: start: 20100121
  6. KAPIDEX [Concomitant]
  7. ANTIVERT [Concomitant]
  8. LOESTRIN 1.5/30 [Concomitant]
     Dosage: UNK
     Dates: end: 20100225
  9. YAZ [Suspect]
     Indication: CONTRACEPTION
     Dosage: UNK
     Dates: start: 20070409, end: 20100203

REACTIONS (7)
  - ABDOMINAL PAIN UPPER [None]
  - RENAL ABSCESS [None]
  - PAIN [None]
  - BILIARY DYSKINESIA [None]
  - GALLBLADDER INJURY [None]
  - INJURY [None]
  - CHOLECYSTITIS CHRONIC [None]
